FAERS Safety Report 8461520-6 (Version None)
Quarter: 2012Q2

REPORT INFORMATION
  Report Type: 
  Country: None (occurrence: None)
  Receive Date: 20120615
  Receipt Date: 20120528
  Transmission Date: 20120825
  Serious: Yes (Other)
  Sender: FDA-Public Use
  Company Number: 2012-2443

PATIENT
  Sex: Female
  Weight: 13.2 kg

DRUGS (4)
  1. INCRELEX [Suspect]
     Indication: FAILURE TO THRIVE
     Dosage: 1 MG (0.5 MG, 2 IN 1 D), SUBCUTANEOUS; 0.4 MG (0.2 MG, 2 IN 1 D), SUBCUTANEOUS
     Route: 058
     Dates: start: 20120507, end: 20120509
  2. INCRELEX [Suspect]
     Indication: OFF LABEL USE
     Dosage: 1 MG (0.5 MG, 2 IN 1 D), SUBCUTANEOUS; 0.4 MG (0.2 MG, 2 IN 1 D), SUBCUTANEOUS
     Route: 058
     Dates: start: 20120507, end: 20120509
  3. INCRELEX [Suspect]
     Indication: FAILURE TO THRIVE
     Dosage: 1 MG (0.5 MG, 2 IN 1 D), SUBCUTANEOUS; 0.4 MG (0.2 MG, 2 IN 1 D), SUBCUTANEOUS
     Route: 058
     Dates: start: 20120314, end: 20120403
  4. INCRELEX [Suspect]
     Indication: OFF LABEL USE
     Dosage: 1 MG (0.5 MG, 2 IN 1 D), SUBCUTANEOUS; 0.4 MG (0.2 MG, 2 IN 1 D), SUBCUTANEOUS
     Route: 058
     Dates: start: 20120314, end: 20120403

REACTIONS (1)
  - INJECTION SITE MASS [None]
